FAERS Safety Report 24142090 (Version 2)
Quarter: 2024Q3

REPORT INFORMATION
  Report Type: Report from Study
  Country: US (occurrence: US)
  Receive Date: 20240726
  Receipt Date: 20240903
  Transmission Date: 20241017
  Serious: Yes (Hospitalization)
  Sender: XERIS PHARMACEUTICALS
  Company Number: US-BRIAN CONNER SVP QUALITY AND CHIEF COMPLIANCE OFFICER-2024XER00376

PATIENT
  Sex: Female

DRUGS (3)
  1. KEVEYIS [Suspect]
     Active Substance: DICHLORPHENAMIDE
     Indication: Paralysis
     Dosage: 50 MG, 2X/DAY
     Route: 048
     Dates: start: 20210705, end: 202402
  2. KEVEYIS [Suspect]
     Active Substance: DICHLORPHENAMIDE
     Dosage: 50 MG, 2X/DAY
     Route: 048
     Dates: start: 2024
  3. KEVEYIS [Suspect]
     Active Substance: DICHLORPHENAMIDE
     Dosage: 50 MG, 2X/DAY
     Route: 048

REACTIONS (7)
  - Sepsis [Recovered/Resolved]
  - Streptococcal infection [Recovered/Resolved]
  - Cellulitis [Recovered/Resolved]
  - Blood electrolytes decreased [Recovered/Resolved]
  - Myotonia [Recovering/Resolving]
  - Paraesthesia [Recovered/Resolved]
  - Blood potassium decreased [Recovered/Resolved]

NARRATIVE: CASE EVENT DATE: 20210101
